FAERS Safety Report 7833929-2 (Version None)
Quarter: 2011Q4

REPORT INFORMATION
  Report Type: 
  Country: None (occurrence: None)
  Receive Date: 20111020
  Receipt Date: 20111007
  Transmission Date: 20120403
  Serious: Yes (Life-Threatening, Hospitalization)
  Sender: FDA-Public Use
  Company Number: 2011MA015043

PATIENT
  Age: 44 Year
  Sex: Female

DRUGS (4)
  1. OMEPRAZOLE [Concomitant]
  2. CITALOPRAM HYDROBROMIDE [Suspect]
     Indication: ACUTE STRESS DISORDER
     Dosage: 20 MG; QD
     Dates: start: 20100819, end: 20110913
  3. DICLOFENAC POTASSIUM [Concomitant]
  4. PIPRAM [Concomitant]

REACTIONS (2)
  - ATRIAL FIBRILLATION [None]
  - VENTRICULAR FIBRILLATION [None]
